FAERS Safety Report 18147652 (Version 1)
Quarter: 2020Q3

REPORT INFORMATION
  Report Type: Spontaneous
  Country: US (occurrence: US)
  Receive Date: 20200813
  Receipt Date: 20200813
  Transmission Date: 20201103
  Serious: Yes (Disabling, Other)
  Sender: FDA-Public Use
  Company Number: US-FRESENIUS KABI-FK202008315

PATIENT
  Age: 33 Year
  Sex: Female

DRUGS (3)
  1. RED BLOOD CELLS [Concomitant]
     Active Substance: HUMAN RED BLOOD CELL
     Dosage: 2 UNITS
     Route: 065
  2. PHENYLEPHRINE HYDROCHLORIDE INJECTION (MANUFACTURER UNKNOWN) [Suspect]
     Active Substance: PHENYLEPHRINE HYDROCHLORIDE
     Indication: HYPOVOLAEMIC SHOCK
     Dosage: UNKNOWN
     Route: 042
  3. RED BLOOD CELLS [Concomitant]
     Active Substance: HUMAN RED BLOOD CELL
     Indication: HYPOVOLAEMIC SHOCK
     Dosage: 3 UNITS
     Route: 065

REACTIONS (3)
  - Compartment syndrome [Recovered/Resolved with Sequelae]
  - Extravasation [Recovered/Resolved with Sequelae]
  - Venous thrombosis [Recovered/Resolved]
